FAERS Safety Report 6215102-7 (Version None)
Quarter: 2009Q2

REPORT INFORMATION
  Report Type: 
  Country: None (occurrence: None)
  Receive Date: 20090601
  Receipt Date: 20090202
  Transmission Date: 20091009
  Serious: Yes (Other)
  Sender: FDA-Public Use
  Company Number: 283741

PATIENT
  Age: 69 Year
  Sex: Female
  Weight: 66.2 kg

DRUGS (6)
  1. ACTIVELLA [Suspect]
     Indication: HORMONE THERAPY
     Dosage: ORAL
     Route: 048
     Dates: start: 20000101, end: 20020101
  2. PREMARIN [Suspect]
     Indication: HORMONE THERAPY
     Dosage: 0.625 MG, ORAL
     Route: 048
     Dates: start: 19870101, end: 19950101
  3. PROVERA [Suspect]
     Indication: HORMONE THERAPY
     Dosage: 2.5 MG, ORAL
     Route: 048
     Dates: start: 19870101, end: 19950101
  4. PREMPRO [Suspect]
     Indication: HORMONE THERAPY
     Dosage: 0.625/2.5 MG, ORAL; 2.5 MG, ORAL
     Route: 048
     Dates: start: 19950101, end: 20000101
  5. PREMPRO [Suspect]
     Indication: HORMONE THERAPY
     Dosage: 0.625/2.5 MG, ORAL; 2.5 MG, ORAL
     Route: 048
     Dates: start: 19950101, end: 20000101
  6. MICROZIDE /00022001/(HYDROCHLOROTHIAZIDE) [Concomitant]

REACTIONS (1)
  - BREAST CANCER [None]
